FAERS Safety Report 20595882 (Version 1)
Quarter: 2022Q1

REPORT INFORMATION
  Report Type: Spontaneous
  Country: None (occurrence: US)
  Receive Date: 20220315
  Receipt Date: 20220315
  Transmission Date: 20220424
  Serious: No
  Sender: FDA-Public Use
  Company Number: US-Acacia Pharma Limited-2126795

PATIENT
  Age: 18 Year
  Sex: Male

DRUGS (1)
  1. BARHEMSYS [Suspect]
     Active Substance: AMISULPRIDE
     Indication: Prophylaxis of nausea and vomiting
     Route: 042
     Dates: start: 20220301, end: 20220301

REACTIONS (2)
  - Drug ineffective [Unknown]
  - Hypotension [Recovered/Resolved]

NARRATIVE: CASE EVENT DATE: 20220301
